FAERS Safety Report 5673161-4 (Version None)
Quarter: 2008Q1

REPORT INFORMATION
  Report Type: 
  Country: None (occurrence: None)
  Receive Date: 20080319
  Receipt Date: 20080314
  Transmission Date: 20080703
  Serious: Yes (Hospitalization)
  Sender: FDA-Public Use
  Company Number: JP-ALLERGAN-0800931US

PATIENT
  Sex: Male

DRUGS (7)
  1. BLINDED BOTOX PLACEBO [Suspect]
     Indication: DRUG USE FOR UNKNOWN INDICATION
     Dosage: UNK, SINGLE
     Route: 030
  2. BLINDED BOTULINUM TOXIN TYPE A - GENERAL [Suspect]
     Indication: DRUG USE FOR UNKNOWN INDICATION
     Dosage: UNK, SINGLE
     Route: 030
  3. BOTOX INJECTION 100 [Suspect]
     Indication: DRUG USE FOR UNKNOWN INDICATION
     Dosage: 240 UNITS, SINGLE
     Route: 030
     Dates: start: 20071013, end: 20071013
  4. PLETAL [Concomitant]
     Indication: MUSCLE SPASMS
     Dosage: 200 MG, QD
     Route: 048
  5. SIGMART [Concomitant]
     Indication: ANGINA PECTORIS
     Dosage: 10 MG, QD
     Route: 048
  6. PANALDINE [Concomitant]
     Indication: MUSCLE SPASMS
     Dosage: 200 MG, QD
     Route: 048
  7. NITROGLYCERIN [Concomitant]
     Indication: ANGINA PECTORIS
     Dosage: 1 DF, QD

REACTIONS (1)
  - MYOCARDIAL INFARCTION [None]
